FAERS Safety Report 14620738 (Version 1)
Quarter: 2018Q1

REPORT INFORMATION
  Report Type: Spontaneous
  Country: NO (occurrence: NO)
  Receive Date: 20180309
  Receipt Date: 20180309
  Transmission Date: 20180509
  Serious: Yes (Hospitalization)
  Sender: FDA-Public Use
  Company Number: NO-009507513-1802NOR013719

PATIENT
  Age: 30 Year
  Sex: Male

DRUGS (3)
  1. ZEPATIER [Suspect]
     Active Substance: ELBASVIR\GRAZOPREVIR
     Indication: CHRONIC HEPATITIS C
     Dosage: 1 TABLET (50/100MG) EVERY 24 HOURS
     Route: 048
     Dates: start: 20180205, end: 20180207
  2. DIACETYLMORPHINE [Concomitant]
     Active Substance: DIAMORPHINE
  3. AMPHETAMINE [Concomitant]
     Active Substance: AMPHETAMINE

REACTIONS (2)
  - Dyspnoea [Recovering/Resolving]
  - Urticaria [Recovering/Resolving]

NARRATIVE: CASE EVENT DATE: 20180207
